FAERS Safety Report 4880786-2 (Version None)
Quarter: 2006Q1

REPORT INFORMATION
  Report Type: 
  Country: None (occurrence: None)
  Receive Date: 20060111
  Receipt Date: 20050329
  Transmission Date: 20060701
  Serious: No
  Sender: FDA-Public Use
  Company Number: 2005S1000137

PATIENT

DRUGS (23)
  1. CUBICIN [Suspect]
     Dosage: 280 MG;Q48H;IV
     Route: 042
     Dates: start: 20041128, end: 20041205
  2. ALBUMIN (HUMAN) [Concomitant]
  3. ESCITALOPRAM OXALATE [Concomitant]
  4. FOLIC ACID [Concomitant]
  5. HEXTEND [Concomitant]
  6. INSULIN HUMAN REGULAR [Concomitant]
  7. POTASSIUM CHLORIDE [Concomitant]
  8. LACTULOSE [Concomitant]
  9. METOPROLOL [Concomitant]
  10. MULTI-VITAMIN [Concomitant]
  11. NEUTRA-PHOS [Concomitant]
  12. NOREPINEPHRINE [Concomitant]
  13. PANTOPRAZOLE [Concomitant]
  14. PHENYLEPHRINE [Concomitant]
  15. POTASSIUM PHOSPHATES [Concomitant]
  16. SUCRALFATE [Concomitant]
  17. THIAMINE [Concomitant]
  18. ERYTHROMYCIN [Concomitant]
  19. GENTAMICIN [Concomitant]
  20. LEVOFLOXACIN [Concomitant]
  21. METRONIDAZOLE [Concomitant]
  22. NEOMYCIN [Concomitant]
  23. VANCOMYCIN [Concomitant]

REACTIONS (1)
  - INTERNATIONAL NORMALISED RATIO INCREASED [None]
